FAERS Safety Report 18620598 (Version 1)
Quarter: 2020Q4

REPORT INFORMATION
  Report Type: Spontaneous
  Country: US (occurrence: US)
  Receive Date: 20201215
  Receipt Date: 20201215
  Transmission Date: 20210114
  Serious: Yes (Hospitalization, Other)
  Sender: FDA-Public Use
  Company Number: US-MYLANLABS-2020M1102347

PATIENT
  Age: 33 Year
  Sex: Female

DRUGS (9)
  1. LETROZOLE. [Suspect]
     Active Substance: LETROZOLE
     Indication: PALLIATIVE CARE
     Dosage: UNK
     Route: 065
     Dates: start: 20190424
  2. CYCLOPHOSPHAMIDE. [Suspect]
     Active Substance: CYCLOPHOSPHAMIDE
     Indication: CHEMOTHERAPY
     Dosage: UNK
     Route: 065
     Dates: start: 20200211
  3. PALBOCICLIB [Suspect]
     Active Substance: PALBOCICLIB
     Indication: PALLIATIVE CARE
     Dosage: UNK
     Route: 065
     Dates: start: 20190424
  4. ABRAXANE [Suspect]
     Active Substance: PACLITAXEL
     Indication: PRODUCT USED FOR UNKNOWN INDICATION
     Dosage: 2 CYCLES
     Route: 065
     Dates: start: 20200629
  5. ERIBULIN [Suspect]
     Active Substance: ERIBULIN
     Indication: PRODUCT USED FOR UNKNOWN INDICATION
     Dosage: UNK
     Route: 065
     Dates: start: 20200813
  6. DOCETAXEL. [Suspect]
     Active Substance: DOCETAXEL
     Indication: CHEMOTHERAPY
     Dosage: UNK
     Route: 065
     Dates: start: 20200211, end: 202004
  7. LUPRON [Suspect]
     Active Substance: LEUPROLIDE ACETATE
     Indication: PALLIATIVE CARE
     Dosage: UNK
     Route: 065
     Dates: start: 20190424
  8. FASLODEX [Suspect]
     Active Substance: FULVESTRANT
     Indication: PRODUCT USED FOR UNKNOWN INDICATION
     Dosage: UNK
     Route: 065
     Dates: start: 20191227
  9. ADRIAMYCIN [Suspect]
     Active Substance: DOXORUBICIN HYDROCHLORIDE
     Indication: CHEMOTHERAPY
     Dosage: UNK
     Route: 065
     Dates: start: 20200211

REACTIONS (13)
  - Drug ineffective [Not Recovered/Not Resolved]
  - Axillary mass [Unknown]
  - Disease progression [Not Recovered/Not Resolved]
  - Hypoxia [Unknown]
  - Arthralgia [Unknown]
  - Metastases to central nervous system [Unknown]
  - Lymphadenopathy mediastinal [Unknown]
  - Hilar lymphadenopathy [Unknown]
  - Breast mass [Unknown]
  - Lung infiltration [Unknown]
  - Back pain [Unknown]
  - Lung disorder [Unknown]
  - Metastatic neoplasm [Unknown]

NARRATIVE: CASE EVENT DATE: 202004
